FAERS Safety Report 9412224 (Version 1)
Quarter: 2013Q2

REPORT INFORMATION
  Report Type: Spontaneous
  Country: US (occurrence: None)
  Receive Date: 20130515
  Receipt Date: 20130515
  Transmission Date: 20140414
  Serious: Yes (Hospitalization)
  Sender: FDA-Public Use
  Company Number: JPI-P-031033

PATIENT
  Age: 70 Year
  Sex: Male

DRUGS (1)
  1. XYREM (500 MG/ML SOLUTION)(SODIUM OXYBATE) [Suspect]
     Indication: CATAPLEXY
     Dosage: 4.5 GM (2.25 GM,2 IN 1 D)
     Route: 048
     Dates: start: 20081205

REACTIONS (2)
  - Cataplexy [None]
  - Vascular graft [None]
